FAERS Safety Report 12089472 (Version 2)
Quarter: 2016Q2

REPORT INFORMATION
  Report Type: Spontaneous
  Country: US (occurrence: US)
  Receive Date: 20160218
  Receipt Date: 20160516
  Transmission Date: 20160815
  Serious: Yes (Hospitalization)
  Sender: FDA-Public Use
  Company Number: US-AUROBINDO-AUR-APL-2016-01822

PATIENT
  Age: 71 Year
  Sex: Female
  Weight: 104.3 kg

DRUGS (10)
  1. NEXIUM [Suspect]
     Active Substance: ESOMEPRAZOLE MAGNESIUM
     Indication: GASTROOESOPHAGEAL REFLUX DISEASE
     Dosage: 40 MG, ONCE A DAY
     Route: 048
  2. ATORVASTATIN [Concomitant]
     Active Substance: ATORVASTATIN
     Indication: BLOOD CHOLESTEROL ABNORMAL
     Dosage: 40 MG, ONCE A DAY
     Route: 048
     Dates: start: 201509
  3. SPIRONOLACTONE. [Concomitant]
     Active Substance: SPIRONOLACTONE
     Indication: JOINT SWELLING
  4. OMEPRAZOLE DELAYED RELEASE [Suspect]
     Active Substance: OMEPRAZOLE
     Indication: GASTROOESOPHAGEAL REFLUX DISEASE
     Dosage: 20 MG, ONCE A DAY
     Route: 048
  5. NEXIUM [Suspect]
     Active Substance: ESOMEPRAZOLE MAGNESIUM
     Dosage: 22 MG, ONCE A DAY
     Dates: start: 201508
  6. ASPIRIN. [Concomitant]
     Active Substance: ASPIRIN
     Indication: PRODUCT USED FOR UNKNOWN INDICATION
     Dosage: 81 MG, ONCE A DAY
     Route: 048
  7. SPIRONOLACTONE. [Concomitant]
     Active Substance: SPIRONOLACTONE
     Indication: DIURETIC THERAPY
     Dosage: 25 MG, ONCE A DAY
     Route: 048
  8. LEVOTHYROXINE. [Concomitant]
     Active Substance: LEVOTHYROXINE
     Indication: THYROID DISORDER
     Dosage: 100 MG, ONCE A DAY
     Route: 065
     Dates: start: 20160114
  9. METOPROLOL 25MG [Suspect]
     Active Substance: METOPROLOL
     Indication: PALPITATIONS
     Dosage: 25 MG, ONCE A DAY
     Route: 048
  10. TIMOLOL. [Concomitant]
     Active Substance: TIMOLOL
     Indication: GLAUCOMA
     Dosage: 1 DROP ONCE A DAY
     Route: 047
     Dates: start: 2014

REACTIONS (7)
  - Palpitations [Recovered/Resolved]
  - Chest pain [Unknown]
  - Peripheral swelling [Unknown]
  - Infection [Unknown]
  - Cardiac flutter [Recovered/Resolved]
  - Nervousness [Unknown]
  - Thrombosis [Unknown]

NARRATIVE: CASE EVENT DATE: 201508
